FAERS Safety Report 11656452 (Version 1)
Quarter: 2015Q4

REPORT INFORMATION
  Report Type: Spontaneous
  Country: US (occurrence: None)
  Receive Date: 20151023
  Receipt Date: 20151023
  Transmission Date: 20160304
  Serious: Yes (Hospitalization, Other)
  Sender: FDA-Public Use
  Company Number: US-MDT-ADR-2015-02009

PATIENT
  Age: 65 Year
  Sex: Female

DRUGS (2)
  1. FENTANYL 2000MCG/ML [Suspect]
     Active Substance: FENTANYL
     Dosage: ^1252^
  2. BACLOFEN INTRATHECAL 25MCG/ML [Suspect]
     Active Substance: BACLOFEN
     Indication: SPINAL PAIN
     Dosage: ^15.6^

REACTIONS (1)
  - Back pain [None]
